FAERS Safety Report 11224161 (Version 1)
Quarter: 2015Q2

REPORT INFORMATION
  Report Type: Spontaneous
  Country: JP (occurrence: None)
  Receive Date: 20150625
  Receipt Date: 20150625
  Transmission Date: 20150821
  Serious: Yes (Hospitalization)
  Sender: FDA-Public Use
  Company Number: A201203029

PATIENT
  Age: 33 Year
  Sex: Male

DRUGS (3)
  1. BARACLUDE [Suspect]
     Active Substance: ENTECAVIR
     Indication: HEPATITIS B
     Dates: start: 200709
  2. LAMIVUDINE\ [Suspect]
     Active Substance: LAMIVUDINE
     Indication: HEPATITIS B
     Route: 048
     Dates: start: 200102
  3. ADEFOVIR DIPIVOXIL. [Suspect]
     Active Substance: ADEFOVIR DIPIVOXIL
     Indication: HEPATITIS B
     Route: 048
     Dates: start: 200504

REACTIONS (6)
  - Alanine aminotransferase increased [None]
  - Multiple-drug resistance [None]
  - Dyspnoea [None]
  - Hepatitis B DNA increased [None]
  - Hepatitis [None]
  - Lymphadenopathy [None]

NARRATIVE: CASE EVENT DATE: 200504
